FAERS Safety Report 10062809 (Version 1)
Quarter: 2014Q1

REPORT INFORMATION
  Report Type: Spontaneous
  Country: US (occurrence: None)
  Receive Date: 20140318
  Receipt Date: 20140318
  Transmission Date: 20141002
  Serious: Yes (Life-Threatening, Other)
  Sender: FDA-Public Use
  Company Number: CCF00201378

PATIENT
  Age: 95 Year
  Sex: Male
  Weight: 74.2 kg

DRUGS (1)
  1. STERILE WATER FOR INJECTION [Suspect]
     Indication: SEPTIC SHOCK
     Dates: start: 20131019, end: 20131019

REACTIONS (2)
  - Haemolysis [None]
  - Medication error [None]
